FAERS Safety Report 9026030 (Version 2)
Quarter: 2013Q2

REPORT INFORMATION
  Report Type: Spontaneous
  Country: BR (occurrence: BR)
  Receive Date: 20130122
  Receipt Date: 20130405
  Transmission Date: 20140414
  Serious: Yes (Other)
  Sender: FDA-Public Use
  Company Number: BR-ASTRAZENECA-2011SE62681

PATIENT
  Age: 68 Year
  Sex: Male

DRUGS (4)
  1. ATACAND [Suspect]
     Indication: HYPERTENSION
     Route: 048
     Dates: end: 201203
  2. ATACAND HCT [Suspect]
     Indication: HYPERTENSION
     Dosage: 16/12.5 MG, UNKNOWN
     Route: 048
     Dates: start: 201203
  3. ATACAND COMB [Suspect]
     Indication: HYPERTENSION
     Dosage: 16/5 MG
     Route: 048
  4. ZYLORIC [Concomitant]
     Indication: BLOOD URIC ACID INCREASED
     Route: 048

REACTIONS (4)
  - Drug ineffective [Unknown]
  - Blood pressure inadequately controlled [Recovered/Resolved]
  - Blood uric acid abnormal [Unknown]
  - Joint swelling [Recovering/Resolving]
